FAERS Safety Report 10416587 (Version 1)
Quarter: 2014Q3

REPORT INFORMATION
  Report Type: Spontaneous
  Country: BR (occurrence: BR)
  Receive Date: 20140828
  Receipt Date: 20140828
  Transmission Date: 20150326
  Serious: Yes (Death)
  Sender: FDA-Public Use
  Company Number: PHHO2014BR011471

PATIENT
  Age: 61 Year
  Sex: Male
  Weight: 64.5 kg

DRUGS (3)
  1. NILOTINIB [Suspect]
     Active Substance: NILOTINIB
     Indication: ACUTE MYELOID LEUKAEMIA
     Dosage: 800 MG, DAILY
     Route: 048
     Dates: start: 20110608, end: 20140804
  2. GLIBENCLAMIDE [Concomitant]
     Active Substance: GLYBURIDE
     Indication: DIABETES MELLITUS
     Dosage: 5 MG, UNK
     Dates: start: 20131001
  3. METFORMIN [Concomitant]
     Active Substance: METFORMIN HYDROCHLORIDE
     Indication: DIABETES MELLITUS
     Dosage: 850 MG, UNK

REACTIONS (6)
  - Acute myocardial infarction [Fatal]
  - Diabetes mellitus [Fatal]
  - Arteriosclerosis coronary artery [Fatal]
  - Acute myeloid leukaemia [Fatal]
  - Shock [Fatal]
  - Multi-organ failure [Fatal]

NARRATIVE: CASE EVENT DATE: 20140805
